FAERS Safety Report 7222621-3 (Version None)
Quarter: 2011Q1

REPORT INFORMATION
  Report Type: 
  Country: None (occurrence: None)
  Receive Date: 20110112
  Receipt Date: 20110105
  Transmission Date: 20110831
  Serious: Yes (Other)
  Sender: FDA-Public Use
  Company Number: TR-BAXTER-2011BH000688

PATIENT
  Age: 12 Year
  Sex: Male

DRUGS (3)
  1. ALKALI HYDRATION [Concomitant]
     Indication: FLUID REPLACEMENT
     Route: 042
  2. ALLOPURINOL [Concomitant]
     Indication: PRODUCT USED FOR UNKNOWN INDICATION
     Route: 048
  3. CYCLOPHOSPHAMIDE [Suspect]
     Indication: BURKITT'S LYMPHOMA
     Route: 042

REACTIONS (4)
  - POSTERIOR REVERSIBLE ENCEPHALOPATHY SYNDROME [None]
  - TUMOUR LYSIS SYNDROME [None]
  - HYPERTENSION [None]
  - ANURIA [None]
